FAERS Safety Report 8530794-5 (Version None)
Quarter: 2012Q3

REPORT INFORMATION
  Report Type: 
  Country: None (occurrence: None)
  Receive Date: 20120723
  Receipt Date: 20120710
  Transmission Date: 20120928
  Serious: Yes (Life-Threatening)
  Sender: FDA-Public Use
  Company Number: JP-FRI-1000031575

PATIENT
  Sex: Female

DRUGS (17)
  1. MEMANTINE HCL [Suspect]
     Dosage: 20 MG
     Route: 048
     Dates: start: 20120303, end: 20120423
  2. RIVASTACH [Concomitant]
     Dosage: 13.5 MG
     Route: 050
     Dates: start: 20111104, end: 20111215
  3. WARFARIN SODIUM [Suspect]
     Dosage: 1 MG
     Dates: start: 20120427
  4. CELEBREX [Suspect]
     Dosage: 200 MG
     Route: 048
     Dates: end: 20120420
  5. METOPROLOL TARTRATE [Concomitant]
     Indication: PRODUCT USED FOR UNKNOWN INDICATION
     Dosage: 20 MG
     Route: 048
  6. WARFARIN SODIUM [Suspect]
     Indication: PRODUCT USED FOR UNKNOWN INDICATION
     Dosage: 1 MG
     Route: 048
     Dates: end: 20120420
  7. RIVASTACH [Concomitant]
     Dosage: 9 MG
     Route: 050
     Dates: start: 20111007, end: 20111103
  8. RIVASTACH [Concomitant]
     Dosage: 18 MG
     Route: 050
     Dates: start: 20111218
  9. MEMANTINE HCL [Suspect]
     Dosage: 15 MG
     Route: 048
     Dates: start: 20120224, end: 20120302
  10. MEMANTINE HCL [Suspect]
     Dosage: 10 MG
     Route: 048
     Dates: start: 20120424, end: 20120613
  11. SEROQUEL [Concomitant]
     Indication: BEHAVIOURAL AND PSYCHIATRIC SYMPTOMS OF DEMENTIA
     Dosage: 25 MG
     Route: 048
     Dates: start: 20120313
  12. MEMANTINE HCL [Suspect]
     Indication: DEMENTIA ALZHEIMER'S TYPE
     Dosage: 5 MG
     Route: 048
     Dates: start: 20120210, end: 20120216
  13. MEMANTINE HCL [Suspect]
     Dosage: 20 MG
     Route: 048
     Dates: start: 20120614
  14. PL (NON-PYRINE COLD PREPARATION) [Suspect]
     Indication: PRODUCT USED FOR UNKNOWN INDICATION
     Dosage: 3 G
     Route: 048
     Dates: start: 20120418, end: 20120420
  15. YOKU-KAN-SAN [Concomitant]
     Indication: BEHAVIOURAL AND PSYCHIATRIC SYMPTOMS OF DEMENTIA
     Dosage: 7.5 G
     Route: 048
     Dates: start: 20111216
  16. MEMANTINE HCL [Suspect]
     Dosage: 10 MG
     Route: 048
     Dates: start: 20120217, end: 20120223
  17. RIVASTACH [Concomitant]
     Indication: DEMENTIA ALZHEIMER'S TYPE
     Dosage: 4.5 MG
     Route: 050
     Dates: start: 20110826, end: 20111006

REACTIONS (1)
  - RENAL FAILURE ACUTE [None]
